FAERS Safety Report 24657574 (Version 3)
Quarter: 2025Q3

REPORT INFORMATION
  Report Type: Spontaneous
  Country: JP (occurrence: JP)
  Receive Date: 20241125
  Receipt Date: 20250810
  Transmission Date: 20251020
  Serious: Yes (Other)
  Sender: ALEXION PHARMACEUTICALS
  Company Number: JP-ASTRAZENECA-240129479_061310_P_1

PATIENT
  Age: 89 Year
  Sex: Female
  Weight: 41 kg

DRUGS (18)
  1. CRESTOR [Suspect]
     Active Substance: ROSUVASTATIN CALCIUM
  2. CRESTOR [Suspect]
     Active Substance: ROSUVASTATIN CALCIUM
  3. NEXIUM [Suspect]
     Active Substance: ESOMEPRAZOLE MAGNESIUM
     Dosage: BEFORE BEDTIME
  4. NEXIUM [Suspect]
     Active Substance: ESOMEPRAZOLE MAGNESIUM
     Dosage: BEFORE BEDTIME
  5. CARVEDILOL [Concomitant]
     Active Substance: CARVEDILOL
  6. CARVEDILOL [Concomitant]
     Active Substance: CARVEDILOL
  7. SPIRONOLACTONE [Concomitant]
     Active Substance: SPIRONOLACTONE
  8. SPIRONOLACTONE [Concomitant]
     Active Substance: SPIRONOLACTONE
  9. ASPIRIN [Concomitant]
     Active Substance: ASPIRIN
  10. ASPIRIN [Concomitant]
     Active Substance: ASPIRIN
  11. BAZEDOXIFENE [Concomitant]
     Active Substance: BAZEDOXIFENE
     Dosage: AFTER BREAKFAST
  12. BAZEDOXIFENE [Concomitant]
     Active Substance: BAZEDOXIFENE
     Dosage: AFTER BREAKFAST
  13. SACUBITRIL\VALSARTAN [Concomitant]
     Active Substance: SACUBITRIL\VALSARTAN
     Dosage: AFTER BREAKFAST AND EVENING MEAL
  14. SODIUM FERROUS CITRATE [Concomitant]
     Active Substance: SODIUM FERROUS CITRATE
     Dosage: AFTER EVENING MEAL
  15. SODIUM FERROUS CITRATE [Concomitant]
     Active Substance: SODIUM FERROUS CITRATE
     Dosage: AFTER EVENING MEAL
  16. NIFEDIPINE [Concomitant]
     Active Substance: NIFEDIPINE
     Dosage: AFTER BREAKFAST AND EVENING MEAL
  17. SACUBITRIL [Concomitant]
     Active Substance: SACUBITRIL
     Dosage: AFTER BREAKFAST AND EVENING MEAL
  18. NIFEDIPINE [Concomitant]
     Active Substance: NIFEDIPINE
     Dosage: AFTER BREAKFAST AND EVENING MEAL

REACTIONS (3)
  - Sinus node dysfunction [Unknown]
  - Hyperkalaemia [Unknown]
  - Chronic kidney disease [Unknown]
